FAERS Safety Report 14152855 (Version 1)
Quarter: 2017Q4

REPORT INFORMATION
  Report Type: Spontaneous
  Country: US (occurrence: US)
  Receive Date: 20171102
  Receipt Date: 20171102
  Transmission Date: 20180321
  Serious: No
  Sender: FDA-Public Use
  Company Number: US-GLAXOSMITHKLINE-US2017167113

PATIENT
  Sex: Male

DRUGS (1)
  1. ABREVA [Suspect]
     Active Substance: DOCOSANOL
     Indication: ORAL HERPES
     Dosage: APPROXIMATELY 5 TIMES DAILY
     Dates: start: 20171020, end: 20171029

REACTIONS (2)
  - Incorrect drug administration duration [Unknown]
  - Wrong technique in product usage process [Unknown]
